FAERS Safety Report 23734704 (Version 1)
Quarter: 2024Q2

REPORT INFORMATION
  Report Type: Spontaneous
  Country: US (occurrence: US)
  Receive Date: 20240412
  Receipt Date: 20240412
  Transmission Date: 20240715
  Serious: Yes (Hospitalization, Other)
  Sender: FDA-Public Use
  Company Number: US-SANDOZ-SDZ2024US036462

PATIENT
  Age: 45 Month
  Sex: Female

DRUGS (5)
  1. CYCLOPHOSPHAMIDE [Suspect]
     Active Substance: CYCLOPHOSPHAMIDE
     Indication: B-cell type acute leukaemia
     Dosage: 100 MG/M2, QD ON DAYS 1 + 29
     Route: 065
  2. CYTARABINE [Suspect]
     Active Substance: CYTARABINE
     Indication: B-cell type acute leukaemia
     Dosage: 75 MG/M2, QD ON DAYS 1-4, 8 TO 11, 29 TO 32, 36 TO 39
     Route: 065
  3. MERCAPTOPURINE [Suspect]
     Active Substance: MERCAPTOPURINE
     Indication: Product used for unknown indication
     Dosage: 60 MG/M2, QD ON DAYS 1-14, 29 TO 42
     Route: 065
  4. PEGASPARGASE [Suspect]
     Active Substance: PEGASPARGASE
     Indication: Product used for unknown indication
     Dosage: 2500 UNITS/M2 ON DAYS 15 + 43
     Route: 065
  5. VINCRISTINE [Suspect]
     Active Substance: VINCRISTINE
     Indication: Product used for unknown indication
     Dosage: 1.5 MG/M2  ON DAYS 15, 22, 43, 50
     Route: 065

REACTIONS (3)
  - Vitreous haemorrhage [Unknown]
  - Open angle glaucoma [Unknown]
  - Glaucoma [Unknown]
